FAERS Safety Report 18865010 (Version 3)
Quarter: 2021Q1

REPORT INFORMATION
  Report Type: Report from Study
  Country: US (occurrence: US)
  Receive Date: 20210209
  Receipt Date: 20210309
  Transmission Date: 20210420
  Serious: Yes (Other)
  Sender: FDA-Public Use
  Company Number: US-UCBSA-2021004736

PATIENT
  Sex: Female

DRUGS (2)
  1. LEVETIRACETAM. [Suspect]
     Active Substance: LEVETIRACETAM
     Dosage: 500 MILLIGRAM, 2X/DAY (BID)
  2. LEVETIRACETAM. [Suspect]
     Active Substance: LEVETIRACETAM
     Indication: EPILEPSY
     Dosage: UNK

REACTIONS (8)
  - Maternal exposure during pregnancy [Unknown]
  - Petit mal epilepsy [Unknown]
  - Headache [Recovered/Resolved]
  - Aura [Unknown]
  - Partial seizures [Unknown]
  - Migraine [Recovered/Resolved]
  - Simple partial seizures [Unknown]
  - Focal dyscognitive seizures [Unknown]
